FAERS Safety Report 24310792 (Version 2)
Quarter: 2024Q4

REPORT INFORMATION
  Report Type: Report from Study
  Country: CA (occurrence: CA)
  Receive Date: 20240912
  Receipt Date: 20241016
  Transmission Date: 20250114
  Serious: Yes (Hospitalization)
  Sender: BOEHRINGER INGELHEIM
  Company Number: CA-BoehringerIngelheim-2022-BI-192939

PATIENT
  Age: 85 Year
  Sex: Male

DRUGS (1)
  1. OFEV [Suspect]
     Active Substance: NINTEDANIB
     Indication: Idiopathic pulmonary fibrosis
     Route: 048
     Dates: start: 20220817

REACTIONS (21)
  - Fall [Not Recovered/Not Resolved]
  - Rib fracture [Recovering/Resolving]
  - Traumatic renal injury [Unknown]
  - Joint dislocation [Recovering/Resolving]
  - Dizziness [Recovered/Resolved]
  - Syncope [Recovered/Resolved]
  - Vomiting [Recovered/Resolved]
  - Abdominal distension [Recovering/Resolving]
  - Restlessness [Not Recovered/Not Resolved]
  - Tremor [Not Recovered/Not Resolved]
  - Gastroenteritis [Recovered/Resolved]
  - Limb injury [Not Recovered/Not Resolved]
  - Renal impairment [Not Recovered/Not Resolved]
  - Diarrhoea [Recovered/Resolved]
  - Haemoglobin decreased [Recovering/Resolving]
  - Diarrhoea [Recovered/Resolved with Sequelae]
  - Cystitis [Not Recovered/Not Resolved]
  - Gait disturbance [Not Recovered/Not Resolved]
  - Asthenia [Not Recovered/Not Resolved]
  - Gastroenteritis viral [Recovered/Resolved]
  - Cerebral disorder [Unknown]

NARRATIVE: CASE EVENT DATE: 20220901
